FAERS Safety Report 9180013 (Version 2)
Quarter: 2013Q1

REPORT INFORMATION
  Report Type: Spontaneous
  Country: US (occurrence: US)
  Receive Date: 20130321
  Receipt Date: 20130326
  Transmission Date: 20140127
  Serious: Yes (Other)
  Sender: FDA-Public Use
  Company Number: CHPA2013US004919

PATIENT
  Sex: Female

DRUGS (1)
  1. BENEFIBER UNKNOWN [Suspect]
     Dosage: 1 TSP, QD
     Route: 065
     Dates: start: 2007

REACTIONS (4)
  - Influenza [Unknown]
  - Cough [Unknown]
  - Muscle spasms [Unknown]
  - Incorrect dose administered [Unknown]
